FAERS Safety Report 20327753 (Version 1)
Quarter: 2022Q1

REPORT INFORMATION
  Report Type: Report from Study
  Country: JP (occurrence: None)
  Receive Date: 20220112
  Receipt Date: 20220112
  Transmission Date: 20220423
  Serious: Yes (Death)
  Sender: FDA-Public Use
  Company Number: JP-Merck Healthcare KGaA-9292107

PATIENT
  Age: 67 Year
  Sex: Female
  Weight: 73 kg

DRUGS (6)
  1. BAVENCIO [Suspect]
     Active Substance: AVELUMAB
     Indication: Transitional cell carcinoma
     Dates: start: 20210309
  2. AXITINIB [Concomitant]
     Active Substance: AXITINIB
     Indication: Transitional cell carcinoma
     Dates: start: 20210309, end: 20210518
  3. AXITINIB [Concomitant]
     Active Substance: AXITINIB
     Dates: start: 20210519, end: 20210519
  4. AXITINIB [Concomitant]
     Active Substance: AXITINIB
     Dates: start: 20210525, end: 20210601
  5. ACETAMINOPHEN [Concomitant]
     Active Substance: ACETAMINOPHEN
     Indication: Premedication
     Route: 048
     Dates: start: 20210309, end: 20210601
  6. DIPHENHYDRAMINE [Concomitant]
     Active Substance: DIPHENHYDRAMINE
     Indication: Premedication
     Route: 048
     Dates: start: 20210309, end: 20210601

REACTIONS (2)
  - Cardiac failure [Fatal]
  - Haemorrhage [Fatal]

NARRATIVE: CASE EVENT DATE: 20211213
